FAERS Safety Report 25541172 (Version 1)
Quarter: 2025Q3

REPORT INFORMATION
  Report Type: Report from Study
  Country: US (occurrence: US)
  Receive Date: 20250710
  Receipt Date: 20250710
  Transmission Date: 20251020
  Serious: Yes (Other)
  Sender: ABBVIE
  Company Number: US-ABBVIE-6363019

PATIENT
  Sex: Female

DRUGS (2)
  1. VENCLEXTA [Suspect]
     Active Substance: VENETOCLAX
     Indication: Product used for unknown indication
     Route: 048
  2. REVUFORJ [Concomitant]
     Active Substance: REVUMENIB CITRATE
     Indication: Acute myeloid leukaemia
     Dates: start: 20250506, end: 20250708

REACTIONS (1)
  - Disease progression [Unknown]
